FAERS Safety Report 11619524 (Version 4)
Quarter: 2016Q2

REPORT INFORMATION
  Report Type: Spontaneous
  Country: JP (occurrence: JP)
  Receive Date: 20151012
  Receipt Date: 20160420
  Transmission Date: 20160815
  Serious: Yes (Hospitalization)
  Sender: FDA-Public Use
  Company Number: JP-GLAXOSMITHKLINE-JP2015JPN109520

PATIENT
  Age: 15 Year
  Sex: Female
  Weight: 41 kg

DRUGS (8)
  1. ROZEREM [Concomitant]
     Active Substance: RAMELTEON
  2. ALEVIATIN [Concomitant]
     Active Substance: PHENYTOIN SODIUM
  3. RIVOTRIL [Concomitant]
     Active Substance: CLONAZEPAM
  4. SENNOSIDE [Concomitant]
     Active Substance: SENNOSIDES
  5. DEPAKENE [Concomitant]
     Active Substance: VALPROIC ACID
  6. MAGNESIUM OXIDE. [Concomitant]
     Active Substance: MAGNESIUM OXIDE
  7. LAMICTAL [Suspect]
     Active Substance: LAMOTRIGINE
     Indication: EPILEPSY
     Dosage: 5 MG, QD
     Route: 048
     Dates: start: 20150521, end: 20150602
  8. GLYCERIN. [Concomitant]
     Active Substance: GLYCERIN

REACTIONS (10)
  - Stomatitis [Recovered/Resolved]
  - Anaemia [Recovered/Resolved]
  - Gingival pain [Recovered/Resolved]
  - Gingivitis [Recovered/Resolved]
  - Gingival swelling [Recovered/Resolved]
  - Gingivitis [Recovered/Resolved]
  - Haemoglobin decreased [Recovering/Resolving]
  - Gingival bleeding [Recovered/Resolved]
  - Feeding disorder [Recovered/Resolved]
  - C-reactive protein increased [Recovered/Resolved]

NARRATIVE: CASE EVENT DATE: 20150523
